FAERS Safety Report 15175601 (Version 1)
Quarter: 2018Q3

REPORT INFORMATION
  Report Type: Spontaneous
  Country: CA (occurrence: CA)
  Receive Date: 20180720
  Receipt Date: 20180720
  Transmission Date: 20181010
  Serious: Yes (Life-Threatening, Hospitalization, Disabling, Other)
  Sender: FDA-Public Use
  Company Number: CA-TEVA-2018-CA-926589

PATIENT
  Age: 76 Year
  Sex: Female
  Weight: 89.44 kg

DRUGS (17)
  1. APO?AMLODIPINE [Concomitant]
     Active Substance: AMLODIPINE BESYLATE
  2. SPIRIVA RESPIMAT FOR ORAL INHALATION WITH RESPIMAT INHALER ONLY [Concomitant]
     Dosage: 5 MICROGRAM/DOSE
  3. APO FOLIC ACID [Concomitant]
     Active Substance: FOLIC ACID
  4. SYMBICORT [Concomitant]
     Active Substance: BUDESONIDE\FORMOTEROL FUMARATE DIHYDRATE
  5. RAMIPRIL?2.5 [Concomitant]
  6. SYNTHROID [Concomitant]
     Active Substance: LEVOTHYROXINE SODIUM
  7. ASPIRIN. [Concomitant]
     Active Substance: ASPIRIN
  8. RAMIPRIL?5 [Concomitant]
  9. GABAPENTIN. [Concomitant]
     Active Substance: GABAPENTIN
  10. TEVA?DOXYCYCLINE [Suspect]
     Active Substance: DOXYCYCLINE
     Indication: BRONCHITIS
     Route: 048
  11. ATORVASTATIN?10 [Concomitant]
     Active Substance: ATORVASTATIN
  12. METOPROLOL?L [Concomitant]
  13. APO?GLICLAZIDE MR MODIFIED RELEASE BREAKABLE TABLETS [Concomitant]
  14. ESCITALOPRAM [Concomitant]
     Active Substance: ESCITALOPRAM OXALATE
  15. GABAPENTIN. [Concomitant]
     Active Substance: GABAPENTIN
  16. TRAZODONE [Concomitant]
     Active Substance: TRAZODONE HYDROCHLORIDE
  17. VENTOLIN HFA [Concomitant]
     Active Substance: ALBUTEROL SULFATE

REACTIONS (21)
  - Glomerular filtration rate decreased [Recovered/Resolved]
  - Diarrhoea [Recovered/Resolved]
  - Productive cough [Recovered/Resolved]
  - Dysarthria [Recovered/Resolved]
  - Haematemesis [Recovered/Resolved]
  - Respiratory alkalosis [Recovered/Resolved]
  - Body temperature increased [Recovered/Resolved]
  - Crying [Recovered/Resolved]
  - Asthenia [Recovered/Resolved]
  - Blood glucose increased [Recovered/Resolved]
  - Fungal skin infection [Recovered/Resolved]
  - Malaise [Recovered/Resolved]
  - Nausea [Recovered/Resolved]
  - Chills [Recovered/Resolved]
  - Dehydration [Recovered/Resolved]
  - Oropharyngeal pain [Recovered/Resolved]
  - Pharyngeal erythema [Recovered/Resolved]
  - Vomiting [Recovered/Resolved]
  - Abdominal distension [Recovered/Resolved]
  - Dizziness [Recovered/Resolved]
  - Hyperhidrosis [Recovered/Resolved]
